FAERS Safety Report 7346077-5 (Version None)
Quarter: 2011Q1

REPORT INFORMATION
  Report Type: 
  Country: None (occurrence: None)
  Receive Date: 20110311
  Receipt Date: 20110307
  Transmission Date: 20110831
  Serious: Yes (Disabling, Other)
  Sender: FDA-Public Use
  Company Number: US-BAYER-2011-021712

PATIENT
  Sex: Female

DRUGS (1)
  1. YAZ [Suspect]
     Dosage: UNK
     Dates: start: 20070101

REACTIONS (4)
  - VISUAL IMPAIRMENT [None]
  - PAIN [None]
  - PULMONARY EMBOLISM [None]
  - OPTIC ISCHAEMIC NEUROPATHY [None]
